FAERS Safety Report 5179678-3 (Version None)
Quarter: 2006Q4

REPORT INFORMATION
  Report Type: 
  Country: None (occurrence: None)
  Receive Date: 20061211
  Receipt Date: 20061130
  Transmission Date: 20070319
  Serious: No
  Sender: FDA-Public Use
  Company Number: S06-USA-02720-01

PATIENT
  Age: 41 Year
  Sex: Female

DRUGS (2)
  1. LEXAPRO [Suspect]
     Indication: DEPRESSION
     Dosage: 10 MG QD PO
     Route: 048
     Dates: start: 20051101
  2. PRENATAL VITAMIN (NOS) [Concomitant]

REACTIONS (7)
  - ATRIOVENTRICULAR SEPTAL DEFECT [None]
  - CAESAREAN SECTION [None]
  - CARDIAC FAILURE CONGESTIVE [None]
  - DRUG EXPOSURE DURING PREGNANCY [None]
  - NEONATAL DISORDER [None]
  - PREGNANCY [None]
  - TRISOMY 21 [None]
